FAERS Safety Report 9133291 (Version 36)
Quarter: 2016Q2

REPORT INFORMATION
  Report Type: Report from Study
  Country: DE (occurrence: DE)
  Receive Date: 20130301
  Receipt Date: 20160506
  Transmission Date: 20160815
  Serious: Yes (Hospitalization)
  Sender: FDA-Public Use
  Company Number: DE-ROCHE-1192585

PATIENT
  Age: 72 Year
  Sex: Female
  Weight: 76.2 kg

DRUGS (24)
  1. TRASTUZUMAB EMTANSINE [Suspect]
     Active Substance: ADO-TRASTUZUMAB EMTANSINE
     Dosage: LAST DOSE PRIOR TO SAE OF GAVE SYNDROME WITH ACTIVE HEMORRHAGIC OOZING WAS ON 25/APR/2013
     Route: 042
     Dates: start: 20130313, end: 20130627
  2. FUROSEMIDE. [Concomitant]
     Active Substance: FUROSEMIDE
     Route: 065
     Dates: start: 20130516
  3. OMEPRAZOLE. [Concomitant]
     Active Substance: OMEPRAZOLE
     Route: 065
     Dates: start: 20070608, end: 20130306
  4. RANITIDINE. [Concomitant]
     Active Substance: RANITIDINE
     Dosage: DOSED ^EVERY CYCLE^
     Route: 065
     Dates: start: 20130213
  5. CEFTRIAXONE. [Concomitant]
     Active Substance: CEFTRIAXONE
  6. TRASTUZUMAB EMTANSINE [Suspect]
     Active Substance: ADO-TRASTUZUMAB EMTANSINE
     Indication: HER-2 POSITIVE BREAST CANCER
     Dosage: DOSE ALSO REPORTED AS 300MG.?THE LAST DOSE PRIOR TO ALL EVENTS EXCEPT GAVE SYNDROME, WAS 298 MG ON 1
     Route: 042
     Dates: start: 20130213, end: 20130307
  7. TRASTUZUMAB EMTANSINE [Suspect]
     Active Substance: ADO-TRASTUZUMAB EMTANSINE
     Dosage: LAST DOSE PRIOR TO SAE OF HEMOGLOBIN RELEVANT GASTROINTESTINAL BLEEDING WAS ON 13/FEB/2013
     Route: 042
     Dates: start: 20130213, end: 20130213
  8. NOVAMINSULFON [Concomitant]
     Active Substance: METAMIZOLE
     Indication: PYREXIA
     Route: 065
     Dates: start: 20130215, end: 20130215
  9. NOVALGIN [Concomitant]
     Active Substance: METAMIZOLE SODIUM
     Route: 065
     Dates: start: 20130216, end: 20130216
  10. ENALAPRIL [Concomitant]
     Active Substance: ENALAPRIL
     Route: 065
     Dates: start: 20130516, end: 20130718
  11. OMEPRAZOLE. [Concomitant]
     Active Substance: OMEPRAZOLE
     Route: 065
     Dates: start: 20130529
  12. METOCLOPRAMID [Concomitant]
     Active Substance: METOCLOPRAMIDE
     Route: 065
     Dates: start: 20070418
  13. CIPROFLOXACIN. [Concomitant]
     Active Substance: CIPROFLOXACIN
     Indication: URINARY TRACT INFECTION
     Route: 065
     Dates: start: 20130511, end: 20130516
  14. TRASTUZUMAB EMTANSINE [Suspect]
     Active Substance: ADO-TRASTUZUMAB EMTANSINE
     Dosage: THE LAST DOSE PRIOR TO GAVE SYNDROME WAS 300 MG ON 25/APR/2013.?MOST RECENT DOSE PRIOR TO SUSPICION
     Route: 042
     Dates: start: 20130314, end: 20140515
  15. BENAZEPRIL [Concomitant]
     Active Substance: BENAZEPRIL HYDROCHLORIDE
     Dosage: TOTAL DAILY DOSE REPORTED AS 10/12.5 MG.
     Route: 065
     Dates: start: 20090123, end: 20130515
  16. PANTOPRAZOLE [Concomitant]
     Active Substance: PANTOPRAZOLE SODIUM
     Route: 065
     Dates: start: 20130529
  17. TRASTUZUMAB EMTANSINE [Suspect]
     Active Substance: ADO-TRASTUZUMAB EMTANSINE
     Dosage: LAST DOSE PRIOR TO SAE OF RECURRENT GASTRIC HEMORRHAGE WAS ON 16/MAY/2013
     Route: 042
     Dates: start: 20130213
  18. TRASTUZUMAB EMTANSINE [Suspect]
     Active Substance: ADO-TRASTUZUMAB EMTANSINE
     Route: 042
     Dates: start: 20130705, end: 20130816
  19. TRASTUZUMAB EMTANSINE [Suspect]
     Active Substance: ADO-TRASTUZUMAB EMTANSINE
     Route: 042
     Dates: start: 20130823
  20. OMEPRAZOLE. [Concomitant]
     Active Substance: OMEPRAZOLE
     Route: 065
     Dates: start: 20130313, end: 20130528
  21. NOVALGIN [Concomitant]
     Active Substance: METAMIZOLE SODIUM
     Route: 065
     Dates: start: 20130215, end: 20130215
  22. CLEMASTIN [Concomitant]
     Active Substance: CLEMASTINE
     Dosage: DOSED ^EVERY CYCLE^
     Route: 065
     Dates: start: 20130213
  23. SPIRONOLACTON [Concomitant]
     Active Substance: SPIRONOLACTONE
     Route: 065
     Dates: start: 20130516
  24. DEXAMETHASONE. [Concomitant]
     Active Substance: DEXAMETHASONE
     Dosage: DOSED ^EVERY CYCLE^
     Route: 065
     Dates: start: 20130213

REACTIONS (5)
  - Gastrointestinal haemorrhage [Recovered/Resolved]
  - Gastric haemorrhage [Recovered/Resolved]
  - Gastric haemorrhage [Recovered/Resolved]
  - Gastrointestinal haemorrhage [Recovered/Resolved]
  - Acinetobacter infection [Recovered/Resolved]

NARRATIVE: CASE EVENT DATE: 20130214
